FAERS Safety Report 20933180 (Version 2)
Quarter: 2022Q3

REPORT INFORMATION
  Report Type: Spontaneous
  Country: AU (occurrence: AU)
  Receive Date: 20220608
  Receipt Date: 20220706
  Transmission Date: 20221027
  Serious: Yes (Hospitalization, Other)
  Sender: FDA-Public Use
  Company Number: AU-MYLANLABS-2022M1042389

PATIENT
  Age: 58 Year
  Sex: Male

DRUGS (1)
  1. CLOZARIL [Suspect]
     Active Substance: CLOZAPINE
     Indication: Schizophrenia
     Dosage: 300 MILLIGRAM
     Route: 048
     Dates: start: 20060818, end: 202205

REACTIONS (3)
  - Upper limb fracture [Unknown]
  - Fall [Unknown]
  - Antipsychotic drug level increased [Unknown]

NARRATIVE: CASE EVENT DATE: 20220523
